FAERS Safety Report 6911849-5 (Version None)
Quarter: 2010Q3

REPORT INFORMATION
  Report Type: 
  Country: None (occurrence: None)
  Receive Date: 20100806
  Receipt Date: 20070816
  Transmission Date: 20110219
  Serious: No
  Sender: FDA-Public Use
  Company Number: US-PFIZER INC-2007066034

PATIENT
  Sex: Female

DRUGS (2)
  1. VFEND [Suspect]
     Indication: SPLENIC CYST
     Route: 048
     Dates: start: 20060801, end: 20061001
  2. VFEND [Suspect]
     Indication: ASPERGILLOSIS

REACTIONS (4)
  - DRUG INEFFECTIVE [None]
  - ILL-DEFINED DISORDER [None]
  - PSYCHOMOTOR HYPERACTIVITY [None]
  - VISION BLURRED [None]
